FAERS Safety Report 11349413 (Version 1)
Quarter: 2015Q3

REPORT INFORMATION
  Report Type: Spontaneous
  Country: BR (occurrence: BR)
  Receive Date: 20150807
  Receipt Date: 20150807
  Transmission Date: 20151125
  Serious: Yes (Hospitalization, Other)
  Sender: FDA-Public Use
  Company Number: BR-ASTRAZENECA-2015SE74767

PATIENT
  Age: 52 Year
  Sex: Male
  Weight: 82 kg

DRUGS (6)
  1. BENICAR [Concomitant]
     Active Substance: OLMESARTAN MEDOXOMIL
     Indication: HYPERTENSION
     Dosage: 40/25 MG DAILY
     Route: 048
     Dates: start: 2012
  2. SIMVASTATIN. [Concomitant]
     Active Substance: SIMVASTATIN
     Indication: BLOOD CHOLESTEROL ABNORMAL
     Route: 048
     Dates: start: 2012
  3. ASA [Suspect]
     Active Substance: ASPIRIN
     Indication: INFARCTION
     Dosage: DAILY
     Route: 048
     Dates: start: 2012, end: 2013
  4. CLOPIDOGREL [Concomitant]
     Active Substance: CLOPIDOGREL BISULFATE
     Indication: INFARCTION
     Route: 048
     Dates: start: 2013
  5. SELOZOK [Suspect]
     Active Substance: METOPROLOL SUCCINATE
     Indication: HYPERTENSION
     Route: 048
     Dates: start: 2012
  6. SELOZOK [Suspect]
     Active Substance: METOPROLOL SUCCINATE
     Indication: ARRHYTHMIA
     Route: 048
     Dates: start: 2012

REACTIONS (6)
  - Cholelithiasis [Recovered/Resolved]
  - Influenza [Recovered/Resolved]
  - Cholecystitis [Recovered/Resolved]
  - Abdominal distension [Recovered/Resolved]
  - Bronchitis [Recovered/Resolved]
  - Off label use [Not Recovered/Not Resolved]

NARRATIVE: CASE EVENT DATE: 2012
